FAERS Safety Report 14922874 (Version 4)
Quarter: 2018Q3

REPORT INFORMATION
  Report Type: Spontaneous
  Country: JP (occurrence: JP)
  Receive Date: 20180522
  Receipt Date: 20180710
  Transmission Date: 20181010
  Serious: Yes (Hospitalization)
  Sender: FDA-Public Use
  Company Number: JP-ABBVIE-18K-087-2288490-00

PATIENT
  Age: 67 Year
  Sex: Male
  Weight: 64.4 kg

DRUGS (10)
  1. HUMIRA [Suspect]
     Active Substance: ADALIMUMAB
     Route: 058
     Dates: start: 20171220, end: 20180223
  2. METENOLONE [Concomitant]
     Active Substance: METHENOLONE ENANTHATE
     Indication: WHITE BLOOD CELL COUNT DECREASED
     Dosage: DAILY DOSE AND UNIT DOSE:8 DOSAGE FORMS
     Route: 048
     Dates: start: 20170224, end: 20170626
  3. ALLOPURINOL. [Concomitant]
     Active Substance: ALLOPURINOL
     Indication: HYPERURICAEMIA
     Route: 048
     Dates: start: 20170601, end: 20170627
  4. AZANIN [Concomitant]
     Active Substance: AZATHIOPRINE
     Indication: BEHCET^S SYNDROME
     Route: 048
     Dates: start: 20180409, end: 20180411
  5. SULFAMETHOXAZOLE AND TRIMETHOPRIM [Concomitant]
     Active Substance: SULFAMETHOXAZOLE\TRIMETHOPRIM
     Indication: PNEUMONIA
     Dosage: DAILY DOSE AND UNIT DOSE :2 DOSAGE FORMS
     Route: 048
     Dates: start: 20170304, end: 20170628
  6. METENOLONE [Concomitant]
     Active Substance: METHENOLONE ENANTHATE
     Dosage: DAILY DOSE AND UNIT DOSE:4 DOSAGE FORMS
     Route: 048
     Dates: start: 20170627
  7. IMURAN [Concomitant]
     Active Substance: AZATHIOPRINE
     Indication: BEHCET^S SYNDROME
     Route: 048
     Dates: start: 20170531, end: 20170627
  8. HUMIRA [Suspect]
     Active Substance: ADALIMUMAB
     Indication: BEHCET^S SYNDROME
     Route: 058
     Dates: start: 20170322, end: 20171115
  9. SULFAMETHOXAZOLE AND TRIMETHOPRIM [Concomitant]
     Active Substance: SULFAMETHOXAZOLE\TRIMETHOPRIM
     Dosage: DAILY DOSE AND UNIT DOSE :1 DOSAGE FORMS
     Route: 048
     Dates: start: 20170629, end: 20180220
  10. COLCHICINE. [Concomitant]
     Active Substance: COLCHICINE
     Indication: BEHCET^S SYNDROME
     Route: 048
     Dates: start: 20170216

REACTIONS (8)
  - Hypoaesthesia [Unknown]
  - Muscular weakness [Recovered/Resolved]
  - Interstitial lung disease [Recovering/Resolving]
  - Cough [Unknown]
  - Hypoaesthesia [Recovered/Resolved]
  - Chronic inflammatory demyelinating polyradiculoneuropathy [Not Recovered/Not Resolved]
  - Muscular weakness [Recovering/Resolving]
  - Radiculopathy [Recovering/Resolving]

NARRATIVE: CASE EVENT DATE: 20180208
